FAERS Safety Report 23167412 (Version 1)
Quarter: 2023Q4

REPORT INFORMATION
  Report Type: Spontaneous
  Country: US (occurrence: US)
  Receive Date: 20231109
  Receipt Date: 20231109
  Transmission Date: 20240110
  Serious: No
  Sender: FDA-Public Use
  Company Number: US-SA-SAC20231030002204

PATIENT
  Age: 37 Year
  Sex: Female

DRUGS (1)
  1. DUPIXENT [Suspect]
     Active Substance: DUPILUMAB
     Dosage: 300 MG QOW
     Route: 058

REACTIONS (9)
  - Eye discharge [Unknown]
  - Skin fissures [Unknown]
  - Bone pain [Unknown]
  - Dry skin [Unknown]
  - Dizziness [Unknown]
  - Ocular hyperaemia [Unknown]
  - Pruritus [Unknown]
  - Dry eye [Unknown]
  - Eye irritation [Unknown]
